FAERS Safety Report 22613060 (Version 1)
Quarter: 2023Q2

REPORT INFORMATION
  Report Type: Spontaneous
  Country: US (occurrence: US)
  Receive Date: 20230618
  Receipt Date: 20230618
  Transmission Date: 20230721
  Serious: No
  Sender: FDA-Public Use
  Company Number: US-PROGENICS PHARMACEUTICALS, INC.-LMI-2023-00563

PATIENT
  Age: 74 Year
  Sex: Male

DRUGS (9)
  1. PYLARIFY [Suspect]
     Active Substance: PIFLUFOLASTAT F-18
     Indication: Prostate cancer recurrent
     Dosage: 10 MILLICURIE
     Route: 042
     Dates: start: 20230131, end: 20230131
  2. ALBUTEROL [Concomitant]
     Active Substance: ALBUTEROL
     Indication: Product used for unknown indication
     Dosage: UNK
  3. ARNICA (PLANTA TOTA) ^WELEDA^ [Concomitant]
     Indication: Product used for unknown indication
     Dosage: UNK
  4. WELLBUTRIN [Concomitant]
     Active Substance: BUPROPION HYDROCHLORIDE
     Indication: Product used for unknown indication
     Dosage: UNK
  5. LISINOPRIL [Concomitant]
     Active Substance: LISINOPRIL
     Indication: Product used for unknown indication
     Dosage: UNK
  6. ALEVE [Concomitant]
     Active Substance: NAPROXEN SODIUM
     Indication: Product used for unknown indication
     Dosage: UNK
  7. HYDROCHLOROTHIAZIDE [Concomitant]
     Active Substance: HYDROCHLOROTHIAZIDE
     Indication: Product used for unknown indication
     Dosage: UNK
  8. ACETAMINOPHEN\HYDROCODONE [Concomitant]
     Active Substance: ACETAMINOPHEN\HYDROCODONE
     Indication: Product used for unknown indication
     Dosage: UNK
  9. TIOTROPIUM BROMIDE AND OLODATEROL HYDROCHLORIDE [Concomitant]
     Indication: Product used for unknown indication
     Dosage: UNK

REACTIONS (1)
  - Arthralgia [Not Recovered/Not Resolved]

NARRATIVE: CASE EVENT DATE: 20230131
